FAERS Safety Report 7459618-4 (Version None)
Quarter: 2011Q2

REPORT INFORMATION
  Report Type: 
  Country: None (occurrence: None)
  Receive Date: 20110504
  Receipt Date: 20110504
  Transmission Date: 20111010
  Serious: No
  Sender: FDA-Public Use
  Company Number: None

PATIENT
  Age: 44 Year
  Sex: Female
  Weight: 93.8946 kg

DRUGS (1)
  1. DEPO-PROVERA [Suspect]
     Indication: UTERINE LEIOMYOMA
     Dosage: 1 TIME IM
     Route: 030
     Dates: start: 20010311, end: 20010311

REACTIONS (8)
  - MYALGIA [None]
  - SUICIDAL IDEATION [None]
  - DEPRESSION [None]
  - HOMICIDAL IDEATION [None]
  - ARTHROPATHY [None]
  - SPINAL DISORDER [None]
  - ARTHRALGIA [None]
  - WEIGHT INCREASED [None]
